FAERS Safety Report 4583305-3 (Version None)
Quarter: 2005Q1

REPORT INFORMATION
  Report Type: 
  Country: None (occurrence: None)
  Receive Date: 20050125
  Receipt Date: 20041103
  Transmission Date: 20050727
  Serious: No
  Sender: FDA-Public Use
  Company Number: USA040259792

PATIENT
  Age: 75 Year
  Sex: Female

DRUGS (8)
  1. FORTEO [Suspect]
     Indication: OSTEOPOROSIS
     Dates: start: 20040216
  2. PREDNISONE [Concomitant]
  3. LOSARTAN POTASSIUM W/HYDROCHLOROTHIAZIDE [Concomitant]
  4. ZOCOR [Concomitant]
  5. SYNTHROID [Concomitant]
  6. ALBUTEROL [Concomitant]
  7. TRAMADOL HYDROCHLORIDE [Concomitant]
  8. PROCRIT (ERYTHROPOIETIN) [Concomitant]

REACTIONS (12)
  - ANAEMIA [None]
  - COCCYDYNIA [None]
  - DIZZINESS [None]
  - DYSPHEMIA [None]
  - HEADACHE [None]
  - MUSCLE SPASMS [None]
  - NECK PAIN [None]
  - NERVOUSNESS [None]
  - PAIN IN EXTREMITY [None]
  - RED BLOOD CELL COUNT DECREASED [None]
  - RED BLOOD CELL SEDIMENTATION RATE DECREASED [None]
  - SKIN TIGHTNESS [None]
